FAERS Safety Report 9049112 (Version 2)
Quarter: 2013Q1

REPORT INFORMATION
  Report Type: Spontaneous
  Country: US (occurrence: US)
  Receive Date: 20130205
  Receipt Date: 20130219
  Transmission Date: 20140127
  Serious: No
  Sender: FDA-Public Use
  Company Number: US-PFIZER INC-2013043005

PATIENT
  Age: 43 Year
  Sex: Female
  Weight: 95.24 kg

DRUGS (9)
  1. SUTENT [Suspect]
     Indication: METASTATIC RENAL CELL CARCINOMA
     Dosage: 50 MG, CYCLIC ( 50MG 2WKS ON, FOLLOWED BY 1 WK OFF)
     Dates: start: 200807
  2. SUTENT [Suspect]
     Dosage: 50 MG, ONCE A DAY
     Route: 048
     Dates: start: 201001
  3. COREG [Concomitant]
     Dosage: UNK
  4. AMIODARONE [Concomitant]
     Dosage: UNK
  5. SYNTHROID [Concomitant]
     Dosage: UNK
  6. POTASSIUM [Concomitant]
     Dosage: UNK
  7. ZOFRAN [Concomitant]
     Dosage: UNK
  8. LOMOTIL [Concomitant]
     Dosage: UNK
  9. NORCO [Concomitant]
     Dosage: UNK

REACTIONS (6)
  - Diarrhoea [Not Recovered/Not Resolved]
  - Vomiting [Not Recovered/Not Resolved]
  - Blood pressure increased [Unknown]
  - Oral pain [Unknown]
  - Oral discomfort [Unknown]
  - Cough [Unknown]
